FAERS Safety Report 4947730-0 (Version None)
Quarter: 2006Q1

REPORT INFORMATION
  Report Type: 
  Country: None (occurrence: None)
  Receive Date: 20060320
  Receipt Date: 20051110
  Transmission Date: 20060701
  Serious: Yes (Hospitalization)
  Sender: FDA-Public Use
  Company Number: US-KINGPHARMUSA00001-K200501462

PATIENT
  Age: 76 Year
  Sex: Female

DRUGS (26)
  1. ALTACE [Suspect]
     Indication: HYPERTENSION
     Dosage: 5 MG, QD
     Route: 048
     Dates: start: 20050521
  2. NXY-059 [Suspect]
     Indication: ISCHAEMIC STROKE
     Dosage: LOADING DOSE, SINGLE
     Route: 042
     Dates: start: 20050520, end: 20050523
  3. NXY-059 [Suspect]
     Dosage: MAINTENANCE DOSE, SINGLE
     Route: 042
     Dates: start: 20050520, end: 20050523
  4. MOTRIN [Suspect]
     Indication: PAIN IN EXTREMITY
     Dosage: 2,400 MG, QD
     Route: 048
     Dates: start: 20050624, end: 20050627
  5. BUMEX [Suspect]
     Indication: OEDEMA PERIPHERAL
     Dosage: 1 MG, QD
     Route: 048
     Dates: start: 20050526, end: 20050627
  6. MICARDIS HCT [Suspect]
     Indication: HYPERTENSION
     Dosage: 40/12.5MG, QD
     Route: 048
     Dates: end: 20050627
  7. METFORMIN [Concomitant]
     Indication: DIABETES MELLITUS
     Dosage: 1500 MG, UNK
     Route: 048
     Dates: end: 20050627
  8. CIPROFLOXACIN HCL [Concomitant]
     Indication: URINARY TRACT INFECTION
     Route: 048
  9. POTASSIUM [Concomitant]
     Indication: HYPOKALAEMIA
  10. REGLAN    /USA/ [Concomitant]
     Indication: IMPAIRED GASTRIC EMPTYING
     Dosage: 10 MG, UNK
     Route: 048
  11. SYNTHROID [Concomitant]
     Indication: HYPOTHYROIDISM
     Dosage: 137 UG, UNK
  12. CARDIZEM CD [Concomitant]
     Indication: HYPERTENSION
     Dosage: 180 MG, UNK
     Route: 048
  13. SINGULAIR [Concomitant]
     Indication: CHRONIC OBSTRUCTIVE PULMONARY DISEASE
     Dosage: 10 MG, UNK
     Route: 048
  14. SIMVASTATIN [Concomitant]
     Indication: HYPERCHOLESTEROLAEMIA
     Dosage: 20 MG, UNK
     Route: 048
  15. ZOLOFT [Concomitant]
     Indication: DEPRESSION
     Dosage: 50 MG, UNK
     Route: 048
  16. ALBUTEROL [Concomitant]
     Indication: CHRONIC OBSTRUCTIVE PULMONARY DISEASE
  17. ATROVENT [Concomitant]
     Indication: CHRONIC OBSTRUCTIVE PULMONARY DISEASE
     Dates: start: 20050518
  18. ASPIRIN [Concomitant]
     Dosage: 81 MG, UNK
     Route: 048
  19. AVANDIA [Concomitant]
     Indication: DIABETES MELLITUS
     Dosage: 2 MG, UNK
     Route: 048
  20. AMARYL [Concomitant]
     Indication: DIABETES MELLITUS
     Dosage: 4 MG, UNK
     Route: 048
  21. BETAPACE [Concomitant]
     Indication: HYPERTENSION
     Dosage: 40 MG, UNK
     Route: 048
  22. MAGNESIUM OXIDE [Concomitant]
     Indication: ABDOMINAL DISCOMFORT
     Dosage: 800 MG, UNK
     Route: 048
  23. NITROQUICK [Concomitant]
     Indication: CHEST PAIN
  24. PLAVIX [Concomitant]
     Dosage: 75 MG, UNK
     Route: 048
     Dates: start: 20050520
  25. PREVACID [Concomitant]
     Dosage: 30 MG, UNK
     Route: 048
  26. NEXIUM [Concomitant]
     Dosage: 40 MG, UNK
     Route: 048

REACTIONS (10)
  - ANAEMIA [None]
  - ANKLE FRACTURE [None]
  - BLOOD CREATININE INCREASED [None]
  - BLOOD UREA INCREASED [None]
  - CONFUSIONAL STATE [None]
  - CONTUSION [None]
  - FALL [None]
  - FATIGUE [None]
  - MENTAL STATUS CHANGES [None]
  - RENAL FAILURE ACUTE [None]
